FAERS Safety Report 23891117 (Version 1)
Quarter: 2024Q2

REPORT INFORMATION
  Report Type: Spontaneous
  Country: BR (occurrence: BR)
  Receive Date: 20240523
  Receipt Date: 20240523
  Transmission Date: 20240716
  Serious: Yes (Other)
  Sender: FDA-Public Use
  Company Number: BR-SA-SAC20231117000082

PATIENT
  Age: 6 Year
  Sex: Female

DRUGS (7)
  1. SABRIL [Suspect]
     Active Substance: VIGABATRIN
     Indication: Aicardi^s syndrome
     Dosage: 5 DF, QD
     Route: 065
  2. CLOBAZAM [Suspect]
     Active Substance: CLOBAZAM
     Indication: Aicardi^s syndrome
     Dosage: UNK
     Route: 065
  3. KEPPRA [Concomitant]
     Active Substance: LEVETIRACETAM
     Indication: Aicardi^s syndrome
     Dosage: UNK
     Route: 065
  4. LAMOTRIGINE [Concomitant]
     Active Substance: LAMOTRIGINE
     Indication: Aicardi^s syndrome
     Dosage: UNK
     Route: 065
  5. CANNABIDIOL [Concomitant]
     Active Substance: CANNABIDIOL
     Indication: Aicardi^s syndrome
     Dosage: UNK
     Route: 065
  6. DEPAKOTE [Concomitant]
     Active Substance: DIVALPROEX SODIUM
     Indication: Aicardi^s syndrome
     Dosage: UNK
     Route: 065
  7. LEVETIRACETAM [Concomitant]
     Active Substance: LEVETIRACETAM
     Indication: Product used for unknown indication
     Dosage: UNK
     Route: 065

REACTIONS (7)
  - Dependence [Unknown]
  - Neurodevelopmental delay [Unknown]
  - Epilepsy [Unknown]
  - Coloboma [Unknown]
  - Seizure [Unknown]
  - Hypotonia [Unknown]
  - Product use in unapproved indication [Unknown]
